FAERS Safety Report 23858416 (Version 3)
Quarter: 2024Q3

REPORT INFORMATION
  Report Type: Spontaneous
  Country: AU (occurrence: AU)
  Receive Date: 20240515
  Receipt Date: 20240808
  Transmission Date: 20241017
  Serious: Yes (Other)
  Sender: LUPIN
  Company Number: AU-GENERIC HEALTH PTY. LTD.-2024-03896

PATIENT

DRUGS (1)
  1. LEVOTHYROXINE [Suspect]
     Active Substance: LEVOTHYROXINE\LEVOTHYROXINE SODIUM
     Indication: Product used for unknown indication
     Dosage: UNK 2 TABLETS DAILY (MONDAY, WEDNESDAY AND FRIDAY) AND 1 TABLET ON (TUESDAY, THURSDAY, SATURDAY AND
     Route: 065

REACTIONS (5)
  - Hyperthyroidism [Recovering/Resolving]
  - Tachycardia [Unknown]
  - Presyncope [Unknown]
  - Dizziness [Unknown]
  - Product quality issue [Unknown]
